FAERS Safety Report 6201565-X (Version None)
Quarter: 2009Q2

REPORT INFORMATION
  Report Type: 
  Country: None (occurrence: None)
  Receive Date: 20090519
  Receipt Date: 20090512
  Transmission Date: 20091009
  Serious: Yes (Other)
  Sender: FDA-Public Use
  Company Number: 2009SP008619

PATIENT
  Age: 71 Year
  Sex: Male

DRUGS (14)
  1. TEMODAL [Suspect]
     Indication: MALIGNANT MELANOMA
     Dosage: 360 MG/M2
     Dates: start: 20090420, end: 20090420
  2. TEMODAL [Suspect]
     Indication: METASTASES TO CENTRAL NERVOUS SYSTEM
     Dosage: 360 MG/M2
     Dates: start: 20090420, end: 20090420
  3. TEMODAL [Suspect]
     Indication: MALIGNANT MELANOMA
     Dosage: 360 MG/M2
     Dates: start: 20080630
  4. TEMODAL [Suspect]
     Indication: METASTASES TO CENTRAL NERVOUS SYSTEM
     Dosage: 360 MG/M2
     Dates: start: 20080630
  5. TEMODAL [Suspect]
     Indication: MALIGNANT MELANOMA
     Dosage: 360 MG/M2
     Dates: start: 20080728
  6. TEMODAL [Suspect]
     Indication: METASTASES TO CENTRAL NERVOUS SYSTEM
     Dosage: 360 MG/M2
     Dates: start: 20080728
  7. TEMODAL [Suspect]
     Indication: MALIGNANT MELANOMA
     Dosage: 360 MG/M2
     Dates: start: 20080825
  8. TEMODAL [Suspect]
     Indication: METASTASES TO CENTRAL NERVOUS SYSTEM
     Dosage: 360 MG/M2
     Dates: start: 20080825
  9. TEMODAL [Suspect]
     Indication: MALIGNANT MELANOMA
     Dosage: 360 MG/M2
     Dates: start: 20080929
  10. TEMODAL [Suspect]
     Indication: METASTASES TO CENTRAL NERVOUS SYSTEM
     Dosage: 360 MG/M2
     Dates: start: 20080929
  11. TEMODAL [Suspect]
     Indication: MALIGNANT MELANOMA
     Dosage: 360 MG/M2
     Dates: start: 20081201
  12. TEMODAL [Suspect]
     Indication: METASTASES TO CENTRAL NERVOUS SYSTEM
     Dosage: 360 MG/M2
     Dates: start: 20081201
  13. TEMODAL [Suspect]
     Indication: MALIGNANT MELANOMA
     Dosage: 360 MG/M2
     Dates: start: 20081229
  14. TEMODAL [Suspect]
     Indication: METASTASES TO CENTRAL NERVOUS SYSTEM
     Dosage: 360 MG/M2
     Dates: start: 20081229

REACTIONS (1)
  - PULMONARY EMBOLISM [None]
